FAERS Safety Report 13837596 (Version 3)
Quarter: 2018Q3

REPORT INFORMATION
  Report Type: Report from Study
  Country: DE (occurrence: DE)
  Receive Date: 20170805
  Receipt Date: 20180706
  Transmission Date: 20181010
  Serious: Yes (Hospitalization)
  Sender: FDA-Public Use
  Company Number: DE-ROCHE-1972992

PATIENT
  Age: 27 Year
  Sex: Female

DRUGS (6)
  1. PREDNISOLON [Concomitant]
     Active Substance: PREDNISOLONE
  2. TOCILIZUMAB. [Suspect]
     Active Substance: TOCILIZUMAB
     Indication: RHEUMATOID ARTHRITIS
     Route: 058
     Dates: start: 20161223, end: 20170526
  3. IBUPROFEN. [Concomitant]
     Active Substance: IBUPROFEN
  4. PANTOPRAZOL [Concomitant]
     Active Substance: PANTOPRAZOLE SODIUM
  5. METAMIZOL [Concomitant]
     Active Substance: METAMIZOLE SODIUM
  6. L?THYROXIN [Concomitant]
     Active Substance: LEVOTHYROXINE SODIUM

REACTIONS (3)
  - Alopecia [Unknown]
  - Rash [Unknown]
  - Rheumatoid arthritis [Not Recovered/Not Resolved]

NARRATIVE: CASE EVENT DATE: 20170321
